FAERS Safety Report 6142135-1 (Version None)
Quarter: 2009Q2

REPORT INFORMATION
  Report Type: 
  Country: None (occurrence: None)
  Receive Date: 20090402
  Receipt Date: 20090326
  Transmission Date: 20091009
  Serious: Yes (Death, Hospitalization)
  Sender: FDA-Public Use
  Company Number: HR-ABBOTT-09P-216-0559954-00

PATIENT
  Sex: Male
  Weight: 66 kg

DRUGS (5)
  1. ZEMPLAR [Suspect]
     Indication: HYPERPARATHYROIDISM SECONDARY
     Dosage: 1 WEEK 10 MCG, OTHER 15 MCG
     Dates: start: 20070824, end: 20090218
  2. SEVELAMER HYDROCHLORIDE [Concomitant]
     Indication: DRUG USE FOR UNKNOWN INDICATION
  3. ULFAMID [Concomitant]
     Indication: DRUG USE FOR UNKNOWN INDICATION
  4. SORBISTERID [Concomitant]
     Indication: DRUG USE FOR UNKNOWN INDICATION
     Dosage: 1 X 1 DOSE
  5. TRAMADOL [Concomitant]
     Indication: DRUG USE FOR UNKNOWN INDICATION

REACTIONS (2)
  - ARRHYTHMIA [None]
  - JAUNDICE CHOLESTATIC [None]
